FAERS Safety Report 16858991 (Version 3)
Quarter: 2020Q1

REPORT INFORMATION
  Report Type: Report from Study
  Country: US (occurrence: US)
  Receive Date: 20190926
  Receipt Date: 20200117
  Transmission Date: 20200409
  Serious: No
  Sender: FDA-Public Use
  Company Number: PHEH2019US039698

PATIENT
  Sex: Female
  Weight: 45.3 kg

DRUGS (2)
  1. GILENYA [Suspect]
     Active Substance: FINGOLIMOD HYDROCHLORIDE
     Indication: MULTIPLE SCLEROSIS
     Dosage: 0.5 MG, QD
     Route: 048
     Dates: start: 20190725
  2. GILENYA [Suspect]
     Active Substance: FINGOLIMOD HYDROCHLORIDE
     Route: 048

REACTIONS (6)
  - Taste disorder [Unknown]
  - Weight abnormal [Unknown]
  - Vision blurred [Unknown]
  - Parosmia [Not Recovered/Not Resolved]
  - Photosensitivity reaction [Unknown]
  - Visual field defect [Not Recovered/Not Resolved]
